FAERS Safety Report 21859985 (Version 3)
Quarter: 2023Q2

REPORT INFORMATION
  Report Type: Spontaneous
  Country: US (occurrence: None)
  Receive Date: 20230113
  Receipt Date: 20230417
  Transmission Date: 20230722
  Serious: Yes (Other)
  Sender: FDA-Public Use
  Company Number: US-ROCHE-3261218

PATIENT
  Age: 59 Year
  Sex: Female
  Weight: 83.536 kg

DRUGS (3)
  1. HERCEPTIN [Suspect]
     Active Substance: TRASTUZUMAB
     Indication: HER2 positive breast cancer
     Dosage: ONGOING: YES
     Route: 042
  2. PERJETA [Suspect]
     Active Substance: PERTUZUMAB
     Indication: HER2 positive breast cancer
     Dosage: ONGOING: YES
     Route: 042
  3. ABRAXANE [Suspect]
     Active Substance: PACLITAXEL
     Indication: HER2 positive breast cancer
     Dosage: ONGOING: YES
     Route: 042
     Dates: start: 2020

REACTIONS (10)
  - Bone cancer metastatic [Unknown]
  - Metastases to bone [Unknown]
  - Back disorder [Not Recovered/Not Resolved]
  - Alopecia [Unknown]
  - Throat tightness [Recovered/Resolved]
  - Neuropathy peripheral [Unknown]
  - Illness [Unknown]
  - Nervous system disorder [Unknown]
  - Metastases to central nervous system [Unknown]
  - Confusional state [Unknown]
